FAERS Safety Report 17790189 (Version 1)
Quarter: 2020Q2

REPORT INFORMATION
  Report Type: Spontaneous
  Country: US (occurrence: US)
  Receive Date: 20200514
  Receipt Date: 20200514
  Transmission Date: 20200714
  Serious: No
  Sender: FDA-Public Use
  Company Number: None

PATIENT
  Sex: Male

DRUGS (1)
  1. VANCOMYCIN HCL 10 GM HOSPIRA [Suspect]
     Active Substance: VANCOMYCIN
     Dosage: ?          OTHER FREQUENCY:Q12H;?
     Route: 042
     Dates: start: 20200501

REACTIONS (4)
  - Dizziness [None]
  - Tinnitus [None]
  - Headache [None]
  - Chromaturia [None]
